FAERS Safety Report 5642478-1 (Version None)
Quarter: 2008Q1

REPORT INFORMATION
  Report Type: 
  Country: None (occurrence: None)
  Receive Date: 20080227
  Receipt Date: 20080227
  Transmission Date: 20080703
  Serious: Yes (Disabling, Other)
  Sender: FDA-Public Use
  Company Number: None

PATIENT
  Age: 72 Year
  Sex: Female

DRUGS (11)
  1. FOSAMAX [Suspect]
     Indication: OSTEOPOROSIS
     Dosage: 10MG/DAILY  : 70MG/WK
     Dates: start: 19990101, end: 20030101
  2. FOSAMAX [Suspect]
     Indication: OSTEOPOROSIS
     Dosage: 10MG/DAILY  : 70MG/WK
     Dates: start: 20030101, end: 20060501
  3. EVISTA [Concomitant]
  4. VICOPROFEN [Concomitant]
  5. OXYTENAL [Concomitant]
  6. SONATA [Concomitant]
  7. ZYRTEC [Concomitant]
  8. GLYCOLAX [Concomitant]
  9. ENABELEX [Concomitant]
  10. NEXIUM [Concomitant]
  11. DILANTIN [Concomitant]

REACTIONS (3)
  - IMPAIRED HEALING [None]
  - OSTEONECROSIS [None]
  - TRANSPLANT REJECTION [None]
